FAERS Safety Report 7818951-4 (Version None)
Quarter: 2011Q4

REPORT INFORMATION
  Report Type: 
  Country: None (occurrence: None)
  Receive Date: 20111018
  Receipt Date: 20111004
  Transmission Date: 20120403
  Serious: Yes (Other)
  Sender: FDA-Public Use
  Company Number: CA-JNJFOC-20111005711

PATIENT
  Sex: Female
  Weight: 90 kg

DRUGS (16)
  1. REMICADE [Suspect]
     Indication: RHEUMATOID ARTHRITIS
     Dosage: TOTAL OF 86 INFLIXIMAB INFUSIONS
     Route: 042
  2. GOLD [Concomitant]
  3. ASPIRIN [Concomitant]
  4. NEXIUM [Concomitant]
  5. IMURAN [Concomitant]
  6. ATENOLOL [Concomitant]
  7. CELEBREX [Concomitant]
  8. CYCLOBENZAPRINE [Concomitant]
  9. METFORMIN HYDROCHLORIDE [Concomitant]
  10. PRAVACHOL [Concomitant]
  11. GLYBURIDE [Concomitant]
  12. REMICADE [Suspect]
     Route: 042
     Dates: start: 20040401
  13. METHOTREXATE [Concomitant]
  14. IRON [Concomitant]
  15. PAXIL [Concomitant]
  16. HYDROCHLOROTHIAZIDE [Concomitant]

REACTIONS (3)
  - FALL [None]
  - PAIN [None]
  - ACCIDENT AT HOME [None]
